FAERS Safety Report 17966939 (Version 2)
Quarter: 2020Q3

REPORT INFORMATION
  Report Type: Spontaneous
  Country: FR (occurrence: FR)
  Receive Date: 20200701
  Receipt Date: 20200717
  Transmission Date: 20201103
  Serious: Yes (Other)
  Sender: FDA-Public Use
  Company Number: FR-ASTELLAS-2020US021483

PATIENT
  Age: 37 Year
  Sex: Female

DRUGS (1)
  1. ADVAGRAF [Suspect]
     Active Substance: TACROLIMUS
     Indication: LIVER TRANSPLANT
     Route: 065
     Dates: start: 201909

REACTIONS (8)
  - Muscle spasms [Not Recovered/Not Resolved]
  - Blood urine present [Unknown]
  - Asthma [Not Recovered/Not Resolved]
  - Myalgia [Not Recovered/Not Resolved]
  - COVID-19 [Unknown]
  - Immunosuppressant drug level decreased [Unknown]
  - Alanine aminotransferase increased [Not Recovered/Not Resolved]
  - Aspartate aminotransferase increased [Not Recovered/Not Resolved]

NARRATIVE: CASE EVENT DATE: 202001
